FAERS Safety Report 6054885-6 (Version None)
Quarter: 2009Q1

REPORT INFORMATION
  Report Type: 
  Country: None (occurrence: None)
  Receive Date: 20090122
  Receipt Date: 20090116
  Transmission Date: 20090719
  Serious: Yes (Hospitalization)
  Sender: FDA-Public Use
  Company Number: 2009SP001162

PATIENT
  Age: 41 Year
  Sex: Female

DRUGS (2)
  1. TEMODAL [Suspect]
     Indication: OLIGODENDROGLIOMA
     Dosage: 350 MG; QD; PO; 300 MG; QD; PO
     Route: 048
     Dates: start: 20081203, end: 20081208
  2. TEMODAL [Suspect]
     Indication: OLIGODENDROGLIOMA
     Dosage: 350 MG; QD; PO; 300 MG; QD; PO
     Route: 048
     Dates: start: 20080701

REACTIONS (4)
  - ANAEMIA [None]
  - BLOOD PRESSURE DIASTOLIC DECREASED [None]
  - METRORRHAGIA [None]
  - THROMBOCYTOPENIA [None]
